FAERS Safety Report 5143170-2 (Version None)
Quarter: 2006Q4

REPORT INFORMATION
  Report Type: 
  Country: None (occurrence: None)
  Receive Date: 20061103
  Receipt Date: 20060307
  Transmission Date: 20070319
  Serious: Yes (Hospitalization)
  Sender: FDA-Public Use
  Company Number: IT-AVENTIS-200612195GDDC

PATIENT
  Age: 6 Year
  Sex: Female

DRUGS (7)
  1. FLEBOCORTID [Suspect]
     Indication: PREMEDICATION
     Route: 042
     Dates: start: 20060210, end: 20060210
  2. VINCRISTINE [Concomitant]
     Route: 042
  3. ZOFRAN [Concomitant]
     Route: 042
  4. NORMOSOL [Concomitant]
     Dosage: DOSE: 1000 ML/24 HR
     Route: 042
  5. CARBOPLATIN [Concomitant]
     Route: 042
  6. BACTRIM [Concomitant]
     Route: 048
     Dates: start: 20060209, end: 20060211
  7. TRIMETON [Concomitant]
     Route: 042
     Dates: start: 20060210, end: 20060210

REACTIONS (4)
  - BACK PAIN [None]
  - HAEMATURIA [None]
  - HAEMOLYTIC ANAEMIA [None]
  - RENAL IMPAIRMENT [None]
